FAERS Safety Report 4706294-7 (Version None)
Quarter: 2005Q2

REPORT INFORMATION
  Report Type: 
  Country: None (occurrence: None)
  Receive Date: 20050629
  Receipt Date: 20050323
  Transmission Date: 20051028
  Serious: Yes (Hospitalization)
  Sender: FDA-Public Use
  Company Number: 05P-163-0288945-00

PATIENT
  Age: 64 Year
  Sex: Male
  Weight: 74.3899 kg

DRUGS (22)
  1. HUMIRA [Suspect]
     Indication: RHEUMATOID ARTHRITIS
     Dosage: SEE IMAGE
     Dates: start: 20040701, end: 20050118
  2. HUMIRA [Suspect]
     Indication: RHEUMATOID ARTHRITIS
     Dosage: SEE IMAGE
     Dates: start: 20050101, end: 20050201
  3. PREDNISONE TAB [Concomitant]
  4. MELOXICAM [Concomitant]
  5. METOPROLOL TARTRATE [Concomitant]
  6. LOTREL [Concomitant]
  7. ACTOSE [Concomitant]
  8. SUCRALFATE [Concomitant]
  9. BENZONATATE [Concomitant]
  10. LORACET [Concomitant]
  11. SPORNOX [Concomitant]
  12. ALLOPURINOL [Concomitant]
  13. VITAMINS [Concomitant]
  14. ZOPINEX [Concomitant]
  15. ADVAIR DISKUS 100/50 [Concomitant]
  16. SPIRIVA [Concomitant]
  17. RABEPRAZOLE SODIUM [Concomitant]
  18. PANTOPRAZOLE [Concomitant]
  19. PHENERGAN [Concomitant]
  20. FORTEO [Concomitant]
  21. LEFLUNOMIDE [Concomitant]
  22. OXYGEN [Concomitant]

REACTIONS (6)
  - COUGH [None]
  - DYSPNOEA [None]
  - PNEUMONIA [None]
  - PRURITUS [None]
  - RASH [None]
  - RESPIRATORY TRACT INFECTION FUNGAL [None]
